FAERS Safety Report 10237074 (Version 1)
Quarter: 2014Q2

REPORT INFORMATION
  Report Type: Spontaneous
  Country: US (occurrence: US)
  Receive Date: 20140613
  Receipt Date: 20140613
  Transmission Date: 20141212
  Serious: Yes (Hospitalization)
  Sender: FDA-Public Use
  Company Number: US-B.I. PHARMACEUTICALS,INC./RIDGEFIELD-2014-BI-26086BP

PATIENT
  Age: 58 Year
  Sex: Male

DRUGS (3)
  1. SPIRIVA [Suspect]
     Indication: PRODUCT USED FOR UNKNOWN INDICATION
     Route: 065
  2. SIMVASTATIN [Concomitant]
     Route: 065
  3. SYMBICORT [Concomitant]
     Route: 065

REACTIONS (4)
  - Sepsis [Unknown]
  - Dyspnoea [Unknown]
  - Hypersensitivity [Unknown]
  - Asthenia [Unknown]
